FAERS Safety Report 7354781-8 (Version None)
Quarter: 2011Q1

REPORT INFORMATION
  Report Type: 
  Country: None (occurrence: None)
  Receive Date: 20110316
  Receipt Date: 20101202
  Transmission Date: 20110831
  Serious: No
  Sender: FDA-Public Use
  Company Number: US-KINGPHARMUSA00001-K201001464

PATIENT
  Age: 61 Year
  Sex: Male

DRUGS (8)
  1. ALTACE [Suspect]
     Indication: HYPERTENSION
     Dosage: 20 MG, QD
     Route: 048
     Dates: start: 20100801, end: 20100101
  2. TRANXENE [Concomitant]
     Indication: SCHIZOPHRENIA
     Dosage: 7.5 MG, QID
     Route: 048
  3. DIURETICS [Concomitant]
     Dosage: UNK
  4. ALTACE [Suspect]
     Dosage: 20 MG, QD
     Route: 048
     Dates: start: 20100101
  5. HYDROCHLOROTHIAZIDE [Concomitant]
     Dosage: UNK
     Route: 048
  6. LEXAPRO [Concomitant]
     Indication: SCHIZOPHRENIA
     Dosage: UNK
     Route: 048
  7. NEXIUM [Concomitant]
     Indication: GASTROOESOPHAGEAL REFLUX DISEASE
     Dosage: UNK
     Route: 048
  8. NORVASC [Concomitant]
     Indication: HYPERTENSION
     Dosage: UNK
     Route: 048

REACTIONS (3)
  - FEELING ABNORMAL [None]
  - VISUAL IMPAIRMENT [None]
  - HEADACHE [None]
